FAERS Safety Report 7485592-0 (Version None)
Quarter: 2011Q2

REPORT INFORMATION
  Report Type: 
  Country: None (occurrence: None)
  Receive Date: 20110517
  Receipt Date: 20110512
  Transmission Date: 20111010
  Serious: Yes (Hospitalization)
  Sender: FDA-Public Use
  Company Number: US-ABBOTT-11P-163-0720492-00

PATIENT
  Sex: Male
  Weight: 61.744 kg

DRUGS (2)
  1. HUMIRA [Suspect]
     Indication: CROHN'S DISEASE
     Route: 058
     Dates: start: 20110210, end: 20110401
  2. HUMIRA [Suspect]
     Indication: COLITIS

REACTIONS (2)
  - DIARRHOEA [None]
  - HAEMORRHOIDAL HAEMORRHAGE [None]
